FAERS Safety Report 17548855 (Version 1)
Quarter: 2020Q1

REPORT INFORMATION
  Report Type: Spontaneous
  Country: US (occurrence: US)
  Receive Date: 20200317
  Receipt Date: 20200317
  Transmission Date: 20200409
  Serious: Yes (Death)
  Sender: FDA-Public Use
  Company Number: US-ROCHE-2568810

PATIENT
  Sex: Female

DRUGS (8)
  1. PAROXETINE HYDROCHLORIDE. [Concomitant]
     Active Substance: PAROXETINE HYDROCHLORIDE
  2. LUCENTIS [Suspect]
     Active Substance: RANIBIZUMAB
     Indication: INTRAOCULAR LENS IMPLANT
     Dosage: IN LEFT EYE 28 DAYS
     Route: 050
  3. DILTIAZEM HCL [Concomitant]
     Active Substance: DILTIAZEM HYDROCHLORIDE
  4. FAMOTIDINE. [Concomitant]
     Active Substance: FAMOTIDINE
  5. METFORMIN HCL [Concomitant]
     Active Substance: METFORMIN HYDROCHLORIDE
  6. DIGOXIN. [Concomitant]
     Active Substance: DIGOXIN
  7. HYDROCHLOROTHIAZIDE AND LISINOPRIL [Concomitant]
     Active Substance: HYDROCHLOROTHIAZIDE\LISINOPRIL
  8. ATORVASTATIN CALCIUM. [Concomitant]
     Active Substance: ATORVASTATIN CALCIUM

REACTIONS (3)
  - Off label use [Unknown]
  - Death [Fatal]
  - Intentional product use issue [Unknown]
